FAERS Safety Report 12310083 (Version 4)
Quarter: 2016Q2

REPORT INFORMATION
  Report Type: Spontaneous
  Country: US (occurrence: US)
  Receive Date: 20160427
  Receipt Date: 20160613
  Transmission Date: 20160815
  Serious: Yes (Other)
  Sender: FDA-Public Use
  Company Number: US-ACTAVIS-2016-08444

PATIENT
  Age: 64 Year
  Sex: Male

DRUGS (2)
  1. PACLITAXEL (ATLLC) [Suspect]
     Active Substance: PACLITAXEL
     Indication: NON-SMALL CELL LUNG CANCER STAGE IIIA
     Dosage: UNK
     Route: 065
  2. CARBOPLATIN (WATSON LABORATORIES) [Suspect]
     Active Substance: CARBOPLATIN
     Indication: NON-SMALL CELL LUNG CANCER STAGE IIIA
     Dosage: UNK
     Route: 065

REACTIONS (5)
  - Atrial fibrillation [Unknown]
  - Pneumothorax [Unknown]
  - Pulmonary air leakage [Unknown]
  - Dysphagia [Unknown]
  - Pulmonary embolism [Unknown]
